FAERS Safety Report 22058895 (Version 1)
Quarter: 2023Q1

REPORT INFORMATION
  Report Type: Spontaneous
  Country: PT (occurrence: PT)
  Receive Date: 20230303
  Receipt Date: 20230303
  Transmission Date: 20230418
  Serious: Yes (Other)
  Sender: FDA-Public Use
  Company Number: PT-002147023-NVSC2023PT043719

PATIENT
  Age: 82 Year
  Sex: Female

DRUGS (1)
  1. GLYCOPYRRONIUM\INDACATEROL [Suspect]
     Active Substance: GLYCOPYRRONIUM\INDACATEROL
     Indication: Respiratory disorder
     Dosage: UNK UNK, QD
     Route: 065
     Dates: start: 20230209, end: 20230220

REACTIONS (8)
  - Cardiac flutter [Not Recovered/Not Resolved]
  - Vision blurred [Recovering/Resolving]
  - Palpitations [Not Recovered/Not Resolved]
  - Peripheral swelling [Recovering/Resolving]
  - Cyanosis [Recovering/Resolving]
  - Peripheral coldness [Recovering/Resolving]
  - Influenza [Unknown]
  - Oropharyngeal pain [Recovering/Resolving]

NARRATIVE: CASE EVENT DATE: 20230209
